FAERS Safety Report 21300796 (Version 4)
Quarter: 2022Q4

REPORT INFORMATION
  Report Type: Report from Study
  Country: TH (occurrence: TH)
  Receive Date: 20220907
  Receipt Date: 20221114
  Transmission Date: 20230113
  Serious: Yes (Hospitalization, Other)
  Sender: FDA-Public Use
  Company Number: TH-BRISTOL-MYERS SQUIBB COMPANY-2022-080258

PATIENT
  Age: 57 Year
  Sex: Male

DRUGS (2)
  1. OPDIVO [Suspect]
     Active Substance: NIVOLUMAB
     Indication: Renal cell carcinoma
     Route: 042
     Dates: start: 20200715
  2. OPDIVO [Suspect]
     Active Substance: NIVOLUMAB
     Dosage: 1 EVERY 3 WEEKS
     Route: 042
     Dates: start: 20211129, end: 202207

REACTIONS (5)
  - Renal impairment [Unknown]
  - Brain neoplasm [Unknown]
  - Off label use [Unknown]
  - Renal function test abnormal [Recovering/Resolving]
  - Urine abnormality [Recovering/Resolving]

NARRATIVE: CASE EVENT DATE: 20211129
